FAERS Safety Report 8479694-X (Version None)
Quarter: 2012Q2

REPORT INFORMATION
  Report Type: 
  Country: None (occurrence: None)
  Receive Date: 20120629
  Receipt Date: 20120626
  Transmission Date: 20120825
  Serious: Yes (Death, Hospitalization, Disabling, Other)
  Sender: FDA-Public Use
  Company Number: CA-ABBOTT-12P-028-0898726-00

PATIENT
  Age: 41 Year
  Sex: Female

DRUGS (14)
  1. NORVIR [Suspect]
     Indication: HIV INFECTION
     Dates: start: 20060312
  2. LAMIVUDINE [Suspect]
     Indication: HIV INFECTION
     Dates: start: 20060512
  3. REYATAZ [Suspect]
     Indication: HIV INFECTION
     Dates: start: 20060512
  4. ROBAXIN [Concomitant]
     Indication: PRODUCT USED FOR UNKNOWN INDICATION
     Dates: start: 20100708
  5. OXYCODONE HCL [Concomitant]
     Indication: PRODUCT USED FOR UNKNOWN INDICATION
     Dates: start: 20100101
  6. IBUPROFEN (ADVIL) [Concomitant]
     Indication: PRODUCT USED FOR UNKNOWN INDICATION
     Dates: start: 20040619
  7. STUDY DRUG MK-0518 (NON-ABBOTT) [Suspect]
     Indication: HIV INFECTION
     Dosage: BLINDED TREATMENT
     Route: 048
     Dates: start: 20060512, end: 20090513
  8. ACETAMINOPHEN [Concomitant]
     Dates: start: 20010101
  9. VIREAD [Suspect]
     Indication: HIV INFECTION
     Dates: start: 20060512
  10. PALAFER [Concomitant]
     Indication: PRODUCT USED FOR UNKNOWN INDICATION
     Dates: start: 20090221
  11. ACETAMINOPHEN [Concomitant]
     Indication: PRODUCT USED FOR UNKNOWN INDICATION
     Dates: start: 20090301
  12. ZOMIG [Concomitant]
     Indication: PRODUCT USED FOR UNKNOWN INDICATION
     Dates: start: 20081011
  13. STUDY DRUG MK-0518 (NON-ABBOTT) [Suspect]
     Route: 048
     Dates: start: 20090314, end: 20100707
  14. DILAUDID [Concomitant]
     Indication: PRODUCT USED FOR UNKNOWN INDICATION
     Dates: start: 20100101

REACTIONS (6)
  - BREAST CANCER METASTATIC [None]
  - BREAST CANCER [None]
  - HYDROCEPHALUS [None]
  - BACK PAIN [None]
  - METASTASES TO BONE [None]
  - WEIGHT INCREASED [None]
